FAERS Safety Report 8533194-7 (Version None)
Quarter: 2012Q2

REPORT INFORMATION
  Report Type: 
  Country: None (occurrence: None)
  Receive Date: 20120412
  Receipt Date: 20100610
  Transmission Date: 20120825
  Serious: Yes (Other)
  Sender: FDA-Public Use
  Company Number: PHHY2010US38334

PATIENT

DRUGS (1)
  1. CLOZARIL [Suspect]
     Dosage: UNK

REACTIONS (1)
  - PANCREATITIS [None]
